FAERS Safety Report 5888390-4 (Version None)
Quarter: 2008Q3

REPORT INFORMATION
  Report Type: 
  Country: None (occurrence: None)
  Receive Date: 20080918
  Receipt Date: 20080906
  Transmission Date: 20090109
  Serious: Yes (Disabling, Other)
  Sender: FDA-Public Use
  Company Number: US-PFIZER INC-2008033373

PATIENT
  Sex: Female
  Weight: 62 kg

DRUGS (8)
  1. ZITHROMAX [Suspect]
     Indication: SINUSITIS
     Dates: start: 20080209, end: 20080304
  2. ACETYL SALICYLIC ACID COMPOUND TAB [Concomitant]
  3. LISINOPRIL [Concomitant]
     Indication: CARDIAC DISORDER
  4. ATENOLOL [Concomitant]
     Indication: CARDIAC DISORDER
  5. MULTI-VITAMINS [Concomitant]
  6. FISH OIL [Concomitant]
  7. OPHTHALMOLOGICALS [Concomitant]
     Indication: EYE DISORDER
  8. ZOCOR [Concomitant]

REACTIONS (6)
  - HYPERAESTHESIA [None]
  - HYPERSENSITIVITY [None]
  - HYPOAESTHESIA FACIAL [None]
  - HYPOAESTHESIA ORAL [None]
  - SINUS DISORDER [None]
  - SINUS HEADACHE [None]
